FAERS Safety Report 14921758 (Version 3)
Quarter: 2018Q3

REPORT INFORMATION
  Report Type: Spontaneous
  Country: BR (occurrence: BR)
  Receive Date: 20180522
  Receipt Date: 20180726
  Transmission Date: 20181010
  Serious: Yes (Death, Hospitalization)
  Sender: FDA-Public Use
  Company Number: BR-AMGEN-BRASP2016077834

PATIENT
  Age: 53 Year
  Sex: Female

DRUGS (1)
  1. ENBREL [Suspect]
     Active Substance: ETANERCEPT
     Indication: PRODUCT USED FOR UNKNOWN INDICATION
     Dosage: UNK
     Route: 065
     Dates: start: 20140513

REACTIONS (5)
  - Hernia perforation [Fatal]
  - Pruritus [Unknown]
  - Rhinitis allergic [Unknown]
  - Influenza [Unknown]
  - Blister [Unknown]

NARRATIVE: CASE EVENT DATE: 20171206
